FAERS Safety Report 26210552 (Version 1)
Quarter: 2025Q4

REPORT INFORMATION
  Report Type: Report from Study
  Country: US (occurrence: US)
  Receive Date: 20251230
  Receipt Date: 20251230
  Transmission Date: 20260118
  Serious: Yes (Hospitalization)
  Sender: RECORDATI
  Company Number: US-ORPHANEU-2025006425

PATIENT
  Sex: Female
  Weight: 75.737 kg

DRUGS (4)
  1. ENJAYMO [Suspect]
     Active Substance: SUTIMLIMAB-JOME
     Indication: Cold type haemolytic anaemia
     Dosage: 6500 MG, QW (LOADING DOSE)
     Dates: start: 20240313
  2. ENJAYMO [Suspect]
     Active Substance: SUTIMLIMAB-JOME
     Dosage: 6500 MILLIGRAM, QOW (EVERY 2 WEEKS)/ MANINTANCE DOSE
     Dates: start: 2024
  3. ENJAYMO [Suspect]
     Active Substance: SUTIMLIMAB-JOME
     Dosage: 6500 MG, QOW (EVERY OTHER WEEK) LOADING DOSE
     Dates: start: 20250903, end: 20251201
  4. PREDNISONE [Concomitant]
     Active Substance: PREDNISONE
     Indication: Product used for unknown indication

REACTIONS (6)
  - Systemic lupus erythematosus [Unknown]
  - Renal failure [Unknown]
  - Pulmonary embolism [Unknown]
  - Rash [Recovered/Resolved]
  - Off label use [Recovered/Resolved]
  - Prescribed underdose [Recovered/Resolved]

NARRATIVE: CASE EVENT DATE: 20250101
